FAERS Safety Report 18340254 (Version 2)
Quarter: 2020Q4

REPORT INFORMATION
  Report Type: Spontaneous
  Country: FR (occurrence: FR)
  Receive Date: 20201002
  Receipt Date: 20201005
  Transmission Date: 20210113
  Serious: Yes (Hospitalization, Other)
  Sender: FDA-Public Use
  Company Number: FR-009507513-0112FRA06060

PATIENT
  Age: 63 Year
  Sex: Male

DRUGS (2)
  1. MOLSIDOMINE [Concomitant]
     Active Substance: MOLSIDOMINE
     Indication: CORONARY ARTERY DISEASE
     Dosage: UNK
     Route: 048
  2. ZOCOR [Suspect]
     Active Substance: SIMVASTATIN
     Indication: HYPERCHOLESTEROLAEMIA
     Dosage: UNK
     Route: 048

REACTIONS (2)
  - Lichen planus [Recovered/Resolved]
  - Pemphigoid [Recovered/Resolved]
